FAERS Safety Report 19720015 (Version 1)
Quarter: 2021Q3

REPORT INFORMATION
  Report Type: Spontaneous
  Country: ES (occurrence: ES)
  Receive Date: 20210818
  Receipt Date: 20210818
  Transmission Date: 20211014
  Serious: Yes (Other)
  Sender: FDA-Public Use
  Company Number: ES-MYLANLABS-2021M1051776

PATIENT
  Age: 90 Year
  Sex: Male
  Weight: 35.9 kg

DRUGS (8)
  1. ERTAPENEM SODIUM [Concomitant]
     Active Substance: ERTAPENEM SODIUM
     Indication: BACTERAEMIA
     Dosage: DOSE 1000, TOTAL DAILY DOSE 1000
     Route: 042
     Dates: start: 20190517, end: 20190523
  2. IRON [Concomitant]
     Active Substance: IRON
     Indication: ANAEMIA
     Dosage: DOSE 105, TOTAL DAILY DOSE 105
     Route: 048
     Dates: start: 20190422, end: 20190519
  3. FOLIC ACID. [Concomitant]
     Active Substance: FOLIC ACID
     Indication: ANAEMIA
     Dosage: DOSE 5, TOTAL DAILY DOSE 5
     Route: 048
     Dates: start: 20190422, end: 20190519
  4. ENOXAPARIN SODIUM. [Concomitant]
     Active Substance: ENOXAPARIN SODIUM
     Indication: CARDIAC FIBRILLATION
     Dosage: DOSE 60, TOTAL DAILY DOSE 12
     Route: 058
     Dates: start: 20190410, end: 20190519
  5. VANCOMYCIN [Suspect]
     Active Substance: VANCOMYCIN
     Indication: CLOSTRIDIUM DIFFICILE INFECTION
     Dosage: UNK
  6. ZINPLAVA [Suspect]
     Active Substance: BEZLOTOXUMAB
     Indication: INFECTION PROPHYLAXIS
     Dosage: 10 MG/KG, SINGLE DOSE
     Dates: start: 20190529
  7. PARACETAMOL [Concomitant]
     Active Substance: ACETAMINOPHEN
     Indication: BACTERAEMIA
     Dosage: DOSE 650, TOTAL DAILY DOSE 1950
     Route: 048
     Dates: start: 20190517, end: 20190519
  8. COLECALCIFEROL [Concomitant]
     Active Substance: CHOLECALCIFEROL
     Indication: OSTEOPOROSIS
     Dosage: DOSE 0.2, TOTAL DAILY DOSE 0.2
     Route: 048
     Dates: start: 20190422, end: 20190514

REACTIONS (2)
  - Clostridium difficile colitis [Recovered/Resolved]
  - Treatment failure [Recovered/Resolved]

NARRATIVE: CASE EVENT DATE: 20190710
